FAERS Safety Report 5212001-4 (Version None)
Quarter: 2007Q1

REPORT INFORMATION
  Report Type: 
  Country: None (occurrence: None)
  Receive Date: 20070118
  Receipt Date: 20070112
  Transmission Date: 20070707
  Serious: Yes (Hospitalization)
  Sender: FDA-Public Use
  Company Number: FR-GLAXOSMITHKLINE-B0454244A

PATIENT
  Age: 69 Year
  Sex: Male

DRUGS (4)
  1. TICARPEN [Suspect]
     Dosage: 3G THREE TIMES PER DAY
     Route: 042
     Dates: start: 20060608, end: 20060611
  2. CIPROFLOXACIN [Suspect]
     Dosage: 400MG TWICE PER DAY
     Route: 042
     Dates: start: 20060608, end: 20060611
  3. VANCOMYCIN [Suspect]
     Dosage: 2G PER DAY
     Route: 042
     Dates: start: 20060607, end: 20060608
  4. GENTAMICIN [Suspect]
     Dosage: 140MG PER DAY
     Route: 065
     Dates: start: 20060607, end: 20060608

REACTIONS (3)
  - STAPHYLOCOCCAL INFECTION [None]
  - TOXIC EPIDERMAL NECROLYSIS [None]
  - TOXIC SKIN ERUPTION [None]
